FAERS Safety Report 15608711 (Version 1)
Quarter: 2018Q4

REPORT INFORMATION
  Report Type: Spontaneous
  Country: US (occurrence: US)
  Receive Date: 20181112
  Receipt Date: 20181112
  Transmission Date: 20190205
  Serious: No
  Sender: FDA-Public Use
  Company Number: US-SA-2016SA074871

PATIENT
  Age: 61 Year
  Sex: Male

DRUGS (10)
  1. LANTUS [Suspect]
     Active Substance: INSULIN GLARGINE
     Indication: DIABETES MELLITUS
     Dosage: 100 DF,QD
     Route: 065
  2. LANTUS [Suspect]
     Active Substance: INSULIN GLARGINE
     Dosage: 100 DF,QD
     Route: 065
  3. LANTUS [Suspect]
     Active Substance: INSULIN GLARGINE
     Dosage: 160 DF,QD
     Route: 065
  4. LANTUS [Suspect]
     Active Substance: INSULIN GLARGINE
     Dosage: 160 DF,QD
     Route: 065
  5. LANTUS [Suspect]
     Active Substance: INSULIN GLARGINE
     Dosage: 100 DF,QD
     Route: 065
  6. LANTUS [Suspect]
     Active Substance: INSULIN GLARGINE
     Dosage: 100 DF,QD
     Route: 065
  7. LANTUS [Suspect]
     Active Substance: INSULIN GLARGINE
     Dosage: 160 DF,QD
     Route: 065
  8. LANTUS [Suspect]
     Active Substance: INSULIN GLARGINE
     Dosage: 160 DF,QD
     Route: 065
  9. LANTUS [Suspect]
     Active Substance: INSULIN GLARGINE
     Dosage: 100 DF,QD
     Route: 065
  10. LANTUS [Suspect]
     Active Substance: INSULIN GLARGINE
     Dosage: 160 DF,QD
     Route: 065

REACTIONS (2)
  - Blood glucose increased [Unknown]
  - Drug ineffective [Unknown]
